FAERS Safety Report 14047745 (Version 16)
Quarter: 2022Q1

REPORT INFORMATION
  Report Type: Spontaneous
  Country: US (occurrence: US)
  Receive Date: 20171005
  Receipt Date: 20220307
  Transmission Date: 20220424
  Serious: Yes (Other)
  Sender: FDA-Public Use
  Company Number: US-PFIZER INC-2017428305

PATIENT
  Age: 65 Year
  Sex: Male
  Weight: 73 kg

DRUGS (21)
  1. LYRICA [Suspect]
     Active Substance: PREGABALIN
     Indication: Restless legs syndrome
     Dosage: 300 MG, 1X/DAY
     Route: 048
  2. LYRICA [Suspect]
     Active Substance: PREGABALIN
     Indication: Neuropathy peripheral
     Dosage: 300 MG, 2X/DAY
     Route: 048
     Dates: start: 20171017
  3. LYRICA [Suspect]
     Active Substance: PREGABALIN
     Indication: Diabetic neuropathy
     Dosage: 300 MG, 2X/DAY
     Dates: start: 2012
  4. LYRICA [Suspect]
     Active Substance: PREGABALIN
     Indication: Type 2 diabetes mellitus
  5. LYRICA [Suspect]
     Active Substance: PREGABALIN
     Indication: Spinal osteoarthritis
  6. LYRICA [Suspect]
     Active Substance: PREGABALIN
     Indication: Myelopathy
  7. LYRICA [Suspect]
     Active Substance: PREGABALIN
     Indication: Osteoarthritis
  8. LYRICA [Suspect]
     Active Substance: PREGABALIN
     Indication: Osteoarthritis
  9. METANX [Concomitant]
     Active Substance: LEVOMEFOLATE CALCIUM\METHYLCOBALAMIN\PYRIDOXAL PHOSPHATE ANHYDROUS
     Indication: Neuropathy peripheral
     Dosage: 1 DF, DAILY [3-90.314-2-35 MG]
     Route: 048
     Dates: start: 20170208
  10. METFORMIN [Concomitant]
     Active Substance: METFORMIN HYDROCHLORIDE
     Indication: Diabetes mellitus
     Dosage: 1000 MG, 2X/DAY
     Route: 048
     Dates: start: 20170417
  11. METFORMIN [Concomitant]
     Active Substance: METFORMIN HYDROCHLORIDE
     Dosage: 40 MG, 2X/DAY (HE THINKS IT IS 40MG, ONE TABLET, TWICE)
     Route: 048
     Dates: start: 2012
  12. ASCORBIC ACID [Concomitant]
     Active Substance: ASCORBIC ACID
     Dosage: UNK
  13. XARELTO [Concomitant]
     Active Substance: RIVAROXABAN
     Dosage: 20 MG, DAILY
     Route: 048
     Dates: start: 20160502
  14. CYMBALTA [Concomitant]
     Active Substance: DULOXETINE HYDROCHLORIDE
     Dosage: 60 MG, DAILY
     Route: 048
     Dates: start: 20170308
  15. LISINOPRIL [Concomitant]
     Active Substance: LISINOPRIL
     Indication: Blood pressure abnormal
     Dosage: 2.5 MG, DAILY
     Route: 048
     Dates: start: 20170801
  16. KETOCONAZOLE [Concomitant]
     Active Substance: KETOCONAZOLE
     Dosage: UNK, 2X/WEEK (1(ONE) SHAMPOO SHAMPOO (EXTERNAL) TWICE WEEKLY)
     Dates: start: 20161229
  17. LIPITOR [Concomitant]
     Active Substance: ATORVASTATIN CALCIUM
     Dosage: 40 MG, DAILY
     Route: 048
     Dates: start: 20170105
  18. MONTELUKAST SODIUM [Concomitant]
     Active Substance: MONTELUKAST SODIUM
     Indication: Nasal congestion
     Dosage: 10 MG, DAILY
     Route: 048
     Dates: start: 20160725
  19. AMIODARONE HYDROCHLORIDE [Concomitant]
     Active Substance: AMIODARONE HYDROCHLORIDE
     Dosage: 100 MG, DAILY (1/2 TABLET )
     Route: 048
     Dates: start: 20160502
  20. OMEPRAZOLE [Concomitant]
     Active Substance: OMEPRAZOLE
     Dosage: 20 MG, 2X/DAY
     Route: 048
     Dates: start: 20160222
  21. HUMALOG [Concomitant]
     Active Substance: INSULIN LISPRO
     Dosage: UNK (5 IU/ML, (WHEN FASTING BLOOD SUGAR OVER 2))
     Route: 058
     Dates: start: 20150615

REACTIONS (4)
  - Lung neoplasm malignant [Recovered/Resolved]
  - Vocal cord disorder [Unknown]
  - Speech disorder [Unknown]
  - Off label use [Unknown]

NARRATIVE: CASE EVENT DATE: 20131201
